FAERS Safety Report 14581293 (Version 3)
Quarter: 2018Q2

REPORT INFORMATION
  Report Type: Spontaneous
  Country: IR (occurrence: IR)
  Receive Date: 20180228
  Receipt Date: 20180502
  Transmission Date: 20180711
  Serious: Yes (Death, Life-Threatening, Hospitalization, Other)
  Sender: FDA-Public Use
  Company Number: IR-MACLEODS PHARMACEUTICALS US LTD-MAC2018010505

PATIENT

DRUGS (3)
  1. AMLODIPINE BESYLATE. [Suspect]
     Active Substance: AMLODIPINE BESYLATE
     Indication: PRODUCT USED FOR UNKNOWN INDICATION
     Dosage: 450 MG, UNK, INGESTED (DELIBERATE SELF-INGESTION OF 450 MG (90 TABLETS-5 MG EACH) OF AMLODIPINE )
     Route: 048
  2. CALCIUM GLUCONATE. [Suspect]
     Active Substance: CALCIUM GLUCONATE
     Dosage: 1.16 MG/KG/H (100MG/H)
     Route: 042
  3. CALCIUM GLUCONATE. [Suspect]
     Active Substance: CALCIUM GLUCONATE
     Indication: PRODUCT USED FOR UNKNOWN INDICATION
     Dosage: 2 G, UNK
     Route: 065

REACTIONS (15)
  - Multiple organ dysfunction syndrome [Fatal]
  - Toxicity to various agents [Fatal]
  - Hypotension [Fatal]
  - Pulmonary oedema [Recovered/Resolved]
  - Intentional overdose [Unknown]
  - Hypercalcaemia [Recovered/Resolved]
  - Hepatic failure [Fatal]
  - Chronic kidney disease [Fatal]
  - Renal failure [Fatal]
  - Tachycardia [Fatal]
  - Shock [Not Recovered/Not Resolved]
  - Metabolic acidosis [Fatal]
  - Rhabdomyolysis [Unknown]
  - Respiratory alkalosis [Unknown]
  - Depressed level of consciousness [Unknown]
